FAERS Safety Report 5528247-1 (Version None)
Quarter: 2007Q4

REPORT INFORMATION
  Report Type: 
  Country: None (occurrence: None)
  Receive Date: 20071128
  Receipt Date: 20071117
  Transmission Date: 20080405
  Serious: Yes (Other)
  Sender: FDA-Public Use
  Company Number: US-PFIZER INC-2007088043

PATIENT
  Sex: Female
  Weight: 76.363 kg

DRUGS (10)
  1. VFEND [Suspect]
     Indication: CANDIDIASIS
     Dates: start: 20071009, end: 20071014
  2. PROTONIX [Concomitant]
  3. LEVOXYL [Concomitant]
  4. SPIRIVA [Concomitant]
  5. FORADIL [Concomitant]
  6. ALBUTEROL [Concomitant]
     Route: 055
  7. ALBUTEROL [Concomitant]
  8. DIOVAN HCT [Concomitant]
  9. VYTORIN [Concomitant]
  10. METFORMIN HCL [Concomitant]

REACTIONS (1)
  - HYPERSENSITIVITY [None]
